FAERS Safety Report 7103655-6 (Version None)
Quarter: 2010Q4

REPORT INFORMATION
  Report Type: 
  Country: None (occurrence: None)
  Receive Date: 20101115
  Receipt Date: 20091007
  Transmission Date: 20110411
  Serious: No
  Sender: FDA-Public Use
  Company Number: US-KINGPHARMUSA00001-K200901243

PATIENT
  Age: 59 Year
  Sex: Female
  Weight: 90.703 kg

DRUGS (2)
  1. LEVOXYL [Suspect]
     Dosage: 100 MCG, QD
     Route: 048
     Dates: start: 20080101, end: 20091002
  2. PRINIVIL [Concomitant]
     Indication: HYPERTENSION
     Dosage: 2.5 MG, QD
     Route: 048

REACTIONS (4)
  - ANXIETY [None]
  - DRUG DISPENSING ERROR [None]
  - NERVOUSNESS [None]
  - TEARFULNESS [None]
